FAERS Safety Report 24631602 (Version 3)
Quarter: 2025Q1

REPORT INFORMATION
  Report Type: Spontaneous
  Country: US (occurrence: US)
  Receive Date: 20241118
  Receipt Date: 20250127
  Transmission Date: 20250409
  Serious: No
  Sender: MERCK
  Company Number: US-009507513-2411USA003978

PATIENT
  Sex: Male
  Weight: 97.5 kg

DRUGS (24)
  1. WINREVAIR [Suspect]
     Active Substance: SOTATERCEPT-CSRK
     Indication: Product used for unknown indication
     Dates: start: 2024
  2. REMODULIN [Suspect]
     Active Substance: TREPROSTINIL
     Indication: Pulmonary arterial hypertension
     Route: 058
     Dates: start: 20230606
  3. KETAMINE HYDROCHLORIDE [Concomitant]
     Active Substance: KETAMINE HYDROCHLORIDE
  4. LECITHIN [Concomitant]
     Active Substance: LECITHIN
  5. SILDENAFIL [Concomitant]
     Active Substance: SILDENAFIL
  6. LISINOPRIL [Concomitant]
     Active Substance: LISINOPRIL
  7. CLONIDINE [Concomitant]
     Active Substance: CLONIDINE
  8. KETOPROFEN [Concomitant]
     Active Substance: KETOPROFEN
  9. BUMETANIDE [Concomitant]
     Active Substance: BUMETANIDE
  10. LIDOCAINE HYDROCHLORIDE [Concomitant]
     Active Substance: LIDOCAINE HYDROCHLORIDE
  11. CARVEDILOL [Concomitant]
     Active Substance: CARVEDILOL
  12. AMITRIPTYLINE HYDROCHLORIDE [Concomitant]
     Active Substance: AMITRIPTYLINE HYDROCHLORIDE
  13. GABAPENTIN [Concomitant]
     Active Substance: GABAPENTIN
  14. POLOXAMER [Concomitant]
     Active Substance: POLOXAMER
  15. LOPERAMIDE [Concomitant]
     Active Substance: LOPERAMIDE
  16. POTASSIUM CHLORIDE [Concomitant]
     Active Substance: POTASSIUM CHLORIDE
  17. VELETRI [Concomitant]
     Active Substance: EPOPROSTENOL
  18. CEPHALEXIN [Concomitant]
     Active Substance: CEPHALEXIN
  19. SODIUM CHLORIDE [Concomitant]
     Active Substance: SODIUM CHLORIDE
  20. XARELTO [Concomitant]
     Active Substance: RIVAROXABAN
  21. SULFAMETHOXAZOLE AND TRIMETHOPRIM [Concomitant]
     Active Substance: SULFAMETHOXAZOLE\TRIMETHOPRIM
  22. AZITHROMYCIN [Concomitant]
     Active Substance: AZITHROMYCIN
  23. OXYCODONE AND ACETAMINOPHEN [Concomitant]
     Active Substance: ACETAMINOPHEN\OXYCODONE HYDROCHLORIDE
  24. HEPARIN SODIUM [Concomitant]
     Active Substance: HEPARIN SODIUM

REACTIONS (2)
  - Blood test abnormal [Unknown]
  - Haemoglobin increased [Unknown]

NARRATIVE: CASE EVENT DATE: 20240101
